FAERS Safety Report 21158338 (Version 1)
Quarter: 2022Q3

REPORT INFORMATION
  Report Type: Spontaneous
  Country: US (occurrence: US)
  Receive Date: 20220801
  Receipt Date: 20220801
  Transmission Date: 20221027
  Serious: Yes (Death, Hospitalization, Other)
  Sender: FDA-Public Use
  Company Number: US-GILEAD-2022-0591639

PATIENT
  Age: 61 Year
  Sex: Male
  Weight: 111.5 kg

DRUGS (2)
  1. TECARTUS [Suspect]
     Active Substance: BREXUCABTAGENE AUTOLEUCEL
     Indication: Mantle cell lymphoma
     Dosage: UNK
     Route: 042
     Dates: start: 20210713, end: 20210713
  2. BENDAMUSTINE [Concomitant]
     Active Substance: BENDAMUSTINE
     Dosage: UNK
     Dates: start: 20210708, end: 20210709

REACTIONS (29)
  - Acidosis [Fatal]
  - Urinary tract infection [Fatal]
  - Sepsis [Fatal]
  - Acute kidney injury [Fatal]
  - Agitation [Fatal]
  - Anxiety [Fatal]
  - Atelectasis [Fatal]
  - Blood sodium decreased [Fatal]
  - Cytokine release syndrome [Fatal]
  - Discomfort [Fatal]
  - Disorientation [Fatal]
  - Drooling [Fatal]
  - Hypercapnia [Fatal]
  - Hyperglycaemia [Fatal]
  - Hyperkalaemia [Fatal]
  - Hypertension [Fatal]
  - Hyperuricaemia [Fatal]
  - Lethargy [Fatal]
  - Mental status changes [Fatal]
  - Neurotoxicity [Fatal]
  - Pleural effusion [Fatal]
  - Pulmonary oedema [Fatal]
  - Pyrexia [Fatal]
  - Shock [Fatal]
  - Somnolence [Fatal]
  - Tachycardia [Fatal]
  - Tachypnoea [Fatal]
  - Tardive dyskinesia [Fatal]
  - Unresponsive to stimuli [Fatal]

NARRATIVE: CASE EVENT DATE: 20210718
